FAERS Safety Report 6727702-6 (Version None)
Quarter: 2010Q2

REPORT INFORMATION
  Report Type: 
  Country: None (occurrence: None)
  Receive Date: 20100517
  Receipt Date: 20100507
  Transmission Date: 20101027
  Serious: Yes (Death, Hospitalization)
  Sender: FDA-Public Use
  Company Number: US-ROCHE-696663

PATIENT
  Sex: Male
  Weight: 95.3 kg

DRUGS (2)
  1. CAPECITABINE [Suspect]
     Indication: COLORECTAL CANCER
     Dosage: DOSE: 3 TABLETS TWICE DAILY (STRENGTH: 500 MG), TEMPORARILY INTERRUPTED
     Route: 048
     Dates: start: 20090703
  2. CAPECITABINE [Suspect]
     Dosage: DOSE: 3 TABLETS TWICE DAILY (STRENGTH: 500 MG)
     Route: 048
     Dates: end: 20100502

REACTIONS (2)
  - BACTERIAL INFECTION [None]
  - DEATH [None]
